FAERS Safety Report 8010183-2 (Version None)
Quarter: 2011Q4

REPORT INFORMATION
  Report Type: 
  Country: None (occurrence: None)
  Receive Date: 20111228
  Receipt Date: 20111216
  Transmission Date: 20120403
  Serious: Yes (Other)
  Sender: FDA-Public Use
  Company Number: US-BAYER-201035004NA

PATIENT
  Age: 56 Year
  Sex: Female
  Weight: 120 kg

DRUGS (1)
  1. AVELOX [Suspect]
     Indication: UPPER RESPIRATORY TRACT INFECTION
     Dosage: 400 MG, QD
     Route: 048
     Dates: start: 20101120, end: 20101120

REACTIONS (5)
  - BLOOD PRESSURE INCREASED [None]
  - SWOLLEN TONGUE [None]
  - RASH [None]
  - DISORIENTATION [None]
  - TONSILLAR HYPERTROPHY [None]
